FAERS Safety Report 13654330 (Version 1)
Quarter: 2017Q2

REPORT INFORMATION
  Report Type: Report from Study
  Country: US (occurrence: US)
  Receive Date: 20170615
  Receipt Date: 20170615
  Transmission Date: 20170830
  Serious: Yes (Death)
  Sender: FDA-Public Use
  Company Number: US-TORRENT-00002921

PATIENT
  Age: 46 Year
  Sex: Female

DRUGS (5)
  1. METOPROLOL TARTRATE. [Suspect]
     Active Substance: METOPROLOL TARTRATE
  2. BACLOFEN. [Suspect]
     Active Substance: BACLOFEN
  3. GABAPENTIN. [Suspect]
     Active Substance: GABAPENTIN
  4. CELECOXIB. [Suspect]
     Active Substance: CELECOXIB
  5. AMLODIPINE [Suspect]
     Active Substance: AMLODIPINE BESYLATE

REACTIONS (2)
  - Toxicity to various agents [Fatal]
  - Completed suicide [Fatal]
